FAERS Safety Report 9232722 (Version 1)
Quarter: 2013Q2

REPORT INFORMATION
  Report Type: Spontaneous
  Country: KR (occurrence: KR)
  Receive Date: 20130416
  Receipt Date: 20130416
  Transmission Date: 20140414
  Serious: Yes (Death, Life-Threatening)
  Sender: FDA-Public Use
  Company Number: KR-009507513-1304KOR007041

PATIENT
  Age: 70 Year
  Sex: 0

DRUGS (3)
  1. TEMODAL [Suspect]
     Indication: GLIOBLASTOMA MULTIFORME
     Dosage: 75 MG/M2, QD (DURING RADIOTHERAPY)
  2. TEMODAL [Suspect]
     Dosage: 150 MG/M2, FOR 5DAYS/WEEK FOR 4 WEEKS
  3. TEMODAL [Suspect]
     Dosage: 200 MG/M2, FOR 5DAYS/WEEK FOR 4 WEEKS

REACTIONS (1)
  - Pneumonia [Fatal]
